FAERS Safety Report 24120813 (Version 2)
Quarter: 2024Q3

REPORT INFORMATION
  Report Type: Spontaneous
  Country: US (occurrence: US)
  Receive Date: 20240722
  Receipt Date: 20240924
  Transmission Date: 20241017
  Serious: No
  Sender: ASCENT
  Company Number: US-ASCENT-2024ASSPO00006

PATIENT
  Age: 61 Year
  Sex: Male
  Weight: 178 kg

DRUGS (11)
  1. POTASSIUM CITRATE [Suspect]
     Active Substance: POTASSIUM CITRATE
     Indication: Nephrolithiasis
     Route: 065
  2. POTASSIUM CITRATE [Suspect]
     Active Substance: POTASSIUM CITRATE
  3. POTASSIUM CITRATE [Suspect]
     Active Substance: POTASSIUM CITRATE
  4. POTASSIUM CITRATE [Suspect]
     Active Substance: POTASSIUM CITRATE
  5. POTASSIUM CITRATE [Suspect]
     Active Substance: POTASSIUM CITRATE
  6. POTASSIUM CITRATE [Suspect]
     Active Substance: POTASSIUM CITRATE
  7. POTASSIUM CITRATE [Suspect]
     Active Substance: POTASSIUM CITRATE
  8. POTASSIUM CITRATE [Suspect]
     Active Substance: POTASSIUM CITRATE
  9. POTASSIUM CITRATE [Suspect]
     Active Substance: POTASSIUM CITRATE
  10. LOSARTAN [Concomitant]
     Active Substance: LOSARTAN\LOSARTAN POTASSIUM
     Indication: Product used for unknown indication
     Route: 065
  11. ROSUVASTATIN [Concomitant]
     Active Substance: ROSUVASTATIN\ROSUVASTATIN CALCIUM
     Indication: Product used for unknown indication
     Route: 065

REACTIONS (4)
  - Condition aggravated [Unknown]
  - Drug ineffective [Unknown]
  - Product substitution issue [Unknown]
  - Product solubility abnormal [Unknown]
